FAERS Safety Report 6441893-6 (Version None)
Quarter: 2009Q4

REPORT INFORMATION
  Report Type: 
  Country: None (occurrence: None)
  Receive Date: 20091112
  Receipt Date: 20091028
  Transmission Date: 20100525
  Serious: Yes (Hospitalization)
  Sender: FDA-Public Use
  Company Number: 235053K09USA

PATIENT
  Age: 64 Year
  Sex: Female
  Weight: 90 kg

DRUGS (15)
  1. REBIF [Suspect]
     Indication: MULTIPLE SCLEROSIS
     Dosage: 44 MCG, 3 IN 1 WEEKS, SUBCUTANEOUS
     Route: 058
     Dates: start: 20070328
  2. MOTRIN [Concomitant]
  3. BACLOFEN [Concomitant]
  4. SINEMET CR [Concomitant]
  5. CYMBALTA [Concomitant]
  6. FOLIC ACID [Concomitant]
  7. IRON PILL (IRON) [Concomitant]
  8. OXYCODONE HCL [Concomitant]
  9. PREVACID [Concomitant]
  10. PROVIGIL [Concomitant]
  11. PROVENTIL HFA (SALBUTAMOL  /00139501/) [Concomitant]
  12. SPIRIVA [Concomitant]
  13. ASPIRIN [Concomitant]
  14. OXYCONTIN [Concomitant]
  15. LYRICA [Concomitant]

REACTIONS (7)
  - ANAEMIA [None]
  - CARDIAC FAILURE CONGESTIVE [None]
  - GAIT DISTURBANCE [None]
  - HEART RATE DECREASED [None]
  - MULTIPLE SCLEROSIS RELAPSE [None]
  - PAIN [None]
  - VOMITING [None]
